FAERS Safety Report 21043135 (Version 1)
Quarter: 2022Q3

REPORT INFORMATION
  Report Type: Spontaneous
  Country: US (occurrence: US)
  Receive Date: 20220705
  Receipt Date: 20220705
  Transmission Date: 20221027
  Serious: No
  Sender: FDA-Public Use
  Company Number: US-ELI_LILLY_AND_COMPANY-US202206010097

PATIENT
  Sex: Female

DRUGS (2)
  1. BEBTELOVIMAB [Suspect]
     Active Substance: BEBTELOVIMAB
     Indication: COVID-19
     Dosage: UNK UNK, UNKNOWN
     Route: 042
     Dates: start: 20220614
  2. ORENCIA [Concomitant]
     Active Substance: ABATACEPT
     Indication: Rheumatoid arthritis
     Dosage: UNK, UNKNOWN
     Route: 065

REACTIONS (2)
  - Somnolence [Unknown]
  - Nervousness [Unknown]

NARRATIVE: CASE EVENT DATE: 20220614
